FAERS Safety Report 7510767-1 (Version None)
Quarter: 2011Q2

REPORT INFORMATION
  Report Type: 
  Country: None (occurrence: None)
  Receive Date: 20110530
  Receipt Date: 20110516
  Transmission Date: 20111010
  Serious: Yes (Disabling, Other)
  Sender: FDA-Public Use
  Company Number: PHHY2011US36943

PATIENT
  Age: 68 Year
  Sex: Female

DRUGS (6)
  1. RECLAST [Suspect]
     Indication: OSTEOPOROSIS POSTMENOPAUSAL
     Dosage: 5 MG, EVERY YEAR
     Route: 042
     Dates: start: 20110330, end: 20110330
  2. GLUCOSAMINE /CHONDROITIN [Concomitant]
     Dosage: UNK
     Route: 048
  3. VITAMIN D [Concomitant]
     Dosage: UNK
     Route: 048
  4. VICODIN [Concomitant]
     Dosage: UNK
     Route: 048
  5. XANAX [Concomitant]
     Dosage: UNK
     Route: 048
  6. CALCIUM CARBONATE [Concomitant]
     Dosage: UNK
     Route: 048

REACTIONS (8)
  - ARTHRALGIA [None]
  - NAUSEA [None]
  - WEIGHT DECREASED [None]
  - VOMITING [None]
  - DIARRHOEA [None]
  - AMNESIA [None]
  - BONE PAIN [None]
  - OEDEMA PERIPHERAL [None]
